FAERS Safety Report 21119121 (Version 1)
Quarter: 2022Q3

REPORT INFORMATION
  Report Type: Spontaneous
  Country: US (occurrence: None)
  Receive Date: 20220721
  Receipt Date: 20220721
  Transmission Date: 20221026
  Serious: Yes (Other)
  Sender: FDA-Public Use
  Company Number: None

PATIENT
  Age: 74 Year
  Sex: Male
  Weight: 203 kg

DRUGS (2)
  1. REMDESIVIR [Suspect]
     Active Substance: REMDESIVIR
     Indication: Upper respiratory tract infection
     Dosage: FREQUENCY : DAILY;?
     Route: 042
     Dates: start: 20220204, end: 20220204
  2. REMDESIVIR [Suspect]
     Active Substance: REMDESIVIR
     Indication: COVID-19

REACTIONS (4)
  - Hypotension [None]
  - Angina pectoris [None]
  - Tachycardia [None]
  - Dizziness [None]

NARRATIVE: CASE EVENT DATE: 20220204
